FAERS Safety Report 4658651-5 (Version None)
Quarter: 2005Q2

REPORT INFORMATION
  Report Type: 
  Country: None (occurrence: None)
  Receive Date: 20050510
  Receipt Date: 20050405
  Transmission Date: 20051028
  Serious: Yes (Death)
  Sender: FDA-Public Use
  Company Number: 2005S1001824

PATIENT
  Age: 42 Year
  Sex: Male
  Weight: 72.5755 kg

DRUGS (2)
  1. FENTANYL [Suspect]
     Dosage: SEE IMAGE
     Route: 048
     Dates: start: 20050404, end: 20050405
  2. FENTANYL [Suspect]
     Dosage: SEE IMAGE
     Route: 048
     Dates: end: 20050405

REACTIONS (4)
  - CONTUSION [None]
  - GRAND MAL CONVULSION [None]
  - HEAD INJURY [None]
  - INCORRECT ROUTE OF DRUG ADMINISTRATION [None]
